FAERS Safety Report 24689307 (Version 1)
Quarter: 2024Q4

REPORT INFORMATION
  Report Type: Spontaneous
  Country: US (occurrence: US)
  Receive Date: 20241203
  Receipt Date: 20241203
  Transmission Date: 20250115
  Serious: No
  Sender: NOVARTIS
  Company Number: US-002147023-NVSC2024US229701

PATIENT
  Age: 50 Year
  Sex: Female

DRUGS (1)
  1. ILARIS [Suspect]
     Active Substance: CANAKINUMAB
     Indication: Still^s disease
     Dosage: 300 MG, Q4W
     Route: 058

REACTIONS (4)
  - Pain [Recovering/Resolving]
  - Pyrexia [Recovering/Resolving]
  - Influenza like illness [Recovering/Resolving]
  - Product dose omission issue [Recovering/Resolving]

NARRATIVE: CASE EVENT DATE: 20241127
